FAERS Safety Report 24881622 (Version 1)
Quarter: 2025Q1

REPORT INFORMATION
  Report Type: Spontaneous
  Country: PE (occurrence: PE)
  Receive Date: 20250124
  Receipt Date: 20250124
  Transmission Date: 20250409
  Serious: Yes (Disabling, Other)
  Sender: ROCHE
  Company Number: PE-ROCHE-10000184742

PATIENT
  Sex: Female

DRUGS (1)
  1. ACTEMRA [Suspect]
     Active Substance: TOCILIZUMAB
     Indication: Giant cell arteritis
     Route: 065

REACTIONS (4)
  - Myelitis transverse [Unknown]
  - Ill-defined disorder [Unknown]
  - Bladder dysfunction [Unknown]
  - Vasculitis [Unknown]
